FAERS Safety Report 6101988-3 (Version None)
Quarter: 2009Q1

REPORT INFORMATION
  Report Type: 
  Country: None (occurrence: None)
  Receive Date: 20090227
  Receipt Date: 20081215
  Transmission Date: 20090719
  Serious: Yes (Hospitalization)
  Sender: FDA-Public Use
  Company Number: 269846

PATIENT
  Age: 15 Year
  Sex: Male
  Weight: 96.6 kg

DRUGS (4)
  1. NUTROPIN AQ [Suspect]
     Indication: RENAL DISORDER
     Dosage: 5 MG, 1/WEEK, SUBCUTANEOUS
     Route: 058
     Dates: start: 20081003, end: 20081013
  2. VALACYCLOVIR (VALACYCLOVIR) [Concomitant]
  3. CYCLOSPORINE [Concomitant]
  4. RAPAMUNE [Concomitant]

REACTIONS (1)
  - TYPE 2 DIABETES MELLITUS [None]
